FAERS Safety Report 8323453 (Version 3)
Quarter: 2012Q4

REPORT INFORMATION
  Report Type: 
  Country: BR (occurrence: BR)
  Receive Date: 20120105
  Receipt Date: 20120921
  Transmission Date: 20130627
  Serious: Yes (Hospitalization)
  Sender: FDA-Public Use
  Company Number: BR-ASTRAZENECA-2011SE78896

PATIENT
  Age: 85 Year
  Sex: Female
  Weight: 74 kg

DRUGS (14)
  1. NEXIUM [Suspect]
     Indication: GASTRITIS PROPHYLAXIS
     Route: 048
     Dates: start: 2008
  2. NEXIUM [Suspect]
     Indication: GASTROOESOPHAGEAL REFLUX DISEASE
     Route: 048
     Dates: start: 2008
  3. NEXIUM [Suspect]
     Indication: GASTRITIS PROPHYLAXIS
     Route: 048
     Dates: start: 2008, end: 201208
  4. NEXIUM [Suspect]
     Indication: GASTROOESOPHAGEAL REFLUX DISEASE
     Route: 048
     Dates: start: 2008, end: 201208
  5. NEXIUM [Suspect]
     Indication: GASTRITIS PROPHYLAXIS
     Route: 048
     Dates: start: 201208
  6. NEXIUM [Suspect]
     Indication: GASTROOESOPHAGEAL REFLUX DISEASE
     Route: 048
     Dates: start: 201208
  7. CRESTOR [Suspect]
     Route: 048
     Dates: end: 2009
  8. MOTILIUM [Concomitant]
     Route: 048
  9. LEVOID [Concomitant]
     Route: 048
  10. LASIX [Concomitant]
     Route: 048
  11. SOTACOR [Concomitant]
     Route: 048
  12. FOLIC ACID [Concomitant]
     Route: 048
  13. OSCAL D [Concomitant]
     Route: 048
  14. CEBRILIN [Concomitant]
     Route: 048

REACTIONS (3)
  - Renal disorder [Unknown]
  - Gastrooesophageal reflux disease [Recovering/Resolving]
  - Drug ineffective [Unknown]
